FAERS Safety Report 5759915-4 (Version None)
Quarter: 2008Q2

REPORT INFORMATION
  Report Type: 
  Country: None (occurrence: None)
  Receive Date: 20080605
  Receipt Date: 20080604
  Transmission Date: 20081010
  Serious: Yes (Death, Hospitalization)
  Sender: FDA-Public Use
  Company Number: IE-BRISTOL-MYERS SQUIBB COMPANY-14051072

PATIENT
  Age: 61 Year
  Sex: Female

DRUGS (4)
  1. PACLITAXEL [Suspect]
     Indication: BREAST CANCER
     Route: 042
     Dates: start: 20071126, end: 20080114
  2. TRASTUZUMAB [Suspect]
     Indication: BREAST CANCER
     Dosage: ROUTE OF ADMINISTRATION-INTRAJOINT
     Route: 042
     Dates: start: 20071126, end: 20080114
  3. AMOXICILLIN+POTASS CLAVULANATE [Concomitant]
     Dates: start: 20080114, end: 20080101
  4. CLARITHROMYCIN [Concomitant]
     Dates: start: 20080114, end: 20080114

REACTIONS (18)
  - ACUTE RESPIRATORY DISTRESS SYNDROME [None]
  - BLOOD MAGNESIUM DECREASED [None]
  - DIARRHOEA [None]
  - DYSPNOEA [None]
  - FLUID OVERLOAD [None]
  - HYPOTENSION [None]
  - IRON DEFICIENCY ANAEMIA [None]
  - METABOLIC ACIDOSIS [None]
  - NOSOCOMIAL INFECTION [None]
  - OEDEMA PERIPHERAL [None]
  - PLEURAL EFFUSION [None]
  - PNEUMOTHORAX [None]
  - PULMONARY EMBOLISM [None]
  - RESPIRATORY ACIDOSIS [None]
  - RESPIRATORY FAILURE [None]
  - RHINORRHOEA [None]
  - SINUS DISORDER [None]
  - SUBCUTANEOUS EMPHYSEMA [None]
